FAERS Safety Report 6865632-X (Version None)
Quarter: 2010Q3

REPORT INFORMATION
  Report Type: 
  Country: None (occurrence: None)
  Receive Date: 20100720
  Receipt Date: 20100702
  Transmission Date: 20110219
  Serious: Yes (Hospitalization, Disabling, Other)
  Sender: FDA-Public Use
  Company Number: 2010-00668

PATIENT
  Age: 69 Year
  Sex: Female

DRUGS (6)
  1. SIMVASTATIN [Suspect]
     Indication: BLOOD CHOLESTEROL INCREASED
     Dosage: 20 MG (1 IN 1 D), ORAL
     Route: 048
     Dates: start: 20100525, end: 20100609
  2. CIPROFIBRATE (UNKNOWN) [Suspect]
     Indication: BLOOD CHOLESTEROL INCREASED
     Dosage: 160 MG (1 IN 1 D), ORAL
     Route: 048
     Dates: start: 20100525, end: 20100609
  3. ASPIRIN [Concomitant]
  4. DIPYRIDAMOLE [Concomitant]
  5. LANSOPRAZOLE [Concomitant]
  6. LORATADINE [Concomitant]

REACTIONS (2)
  - BLINDNESS TRANSIENT [None]
  - EYE SWELLING [None]
